FAERS Safety Report 22182401 (Version 1)
Quarter: 2023Q2

REPORT INFORMATION
  Report Type: Spontaneous
  Country: CA (occurrence: CA)
  Receive Date: 20230406
  Receipt Date: 20230406
  Transmission Date: 20230721
  Serious: Yes (Other)
  Sender: FDA-Public Use
  Company Number: CA-BAYER-2023A045354

PATIENT
  Age: 71 Year
  Sex: Female

DRUGS (2)
  1. GADOBUTROL [Suspect]
     Active Substance: GADOBUTROL
     Indication: Scan with contrast
  2. ATIVAN [Concomitant]
     Active Substance: LORAZEPAM

REACTIONS (3)
  - Feeling hot [Recovered/Resolved]
  - Nausea [None]
  - Syncope [None]
